FAERS Safety Report 4421205-X (Version None)
Quarter: 2004Q3

REPORT INFORMATION
  Report Type: 
  Country: None (occurrence: None)
  Receive Date: 20040804
  Receipt Date: 20040728
  Transmission Date: 20050211
  Serious: Yes (Life-Threatening)
  Sender: FDA-Public Use
  Company Number: 2004AP03922

PATIENT
  Age: 39 Year
  Sex: Female
  Weight: 60 kg

DRUGS (3)
  1. NAROPIN [Suspect]
     Indication: ANAESTHESIA
     Dosage: 200 MG ED
     Route: 008
     Dates: start: 20040727, end: 20040727
  2. PREDONINE [Concomitant]
  3. PREDNISOLONE SODIUM SUCCINATE INJ [Concomitant]

REACTIONS (8)
  - ANAESTHETIC COMPLICATION [None]
  - MUSCLE SPASMS [None]
  - PROCEDURAL COMPLICATION [None]
  - PULSE ABSENT [None]
  - TACHYPNOEA [None]
  - THERAPEUTIC AGENT TOXICITY [None]
  - VENTRICULAR FIBRILLATION [None]
  - VENTRICULAR TACHYCARDIA [None]
